FAERS Safety Report 14367130 (Version 3)
Quarter: 2018Q1

REPORT INFORMATION
  Report Type: Spontaneous
  Country: US (occurrence: US)
  Receive Date: 20180109
  Receipt Date: 20180226
  Transmission Date: 20180509
  Serious: Yes (Life-Threatening, Hospitalization, Other)
  Sender: FDA-Public Use
  Company Number: US-009507513-1801USA001752

PATIENT
  Age: 53 Year
  Sex: Female
  Weight: 67.3 kg

DRUGS (5)
  1. KEYTRUDA [Suspect]
     Active Substance: PEMBROLIZUMAB
     Indication: BREAST CANCER
     Dosage: 200 MG, EVERY 7 DAYS (Q7D)
     Route: 042
     Dates: start: 20171120, end: 20171211
  2. MELOXICAM. [Concomitant]
     Active Substance: MELOXICAM
     Indication: PAIN
     Dosage: TOTAL DAILY DOSE 15 MG
     Route: 048
  3. NIRAPARIB [Concomitant]
     Active Substance: NIRAPARIB
     Indication: NEOPLASM MALIGNANT
     Dosage: TOTAL DAILY DOSE 200MG
     Route: 048
     Dates: start: 20171120, end: 20171211
  4. XELODA [Concomitant]
     Active Substance: CAPECITABINE
     Indication: BREAST CANCER
     Dosage: UNK
  5. CREON [Concomitant]
     Active Substance: PANCRELIPASE AMYLASE\PANCRELIPASE LIPASE\PANCRELIPASE PROTEASE
     Indication: PANCREATIC FAILURE
     Dosage: DOSE 12,000-36,000 -60,000 UNIT; TOTAL DAILY DOSE 4-8 CAPSULES
     Route: 048

REACTIONS (4)
  - Product use in unapproved indication [Unknown]
  - Type 1 diabetes mellitus [Recovered/Resolved]
  - Product use issue [Unknown]
  - Diabetes mellitus [Not Recovered/Not Resolved]

NARRATIVE: CASE EVENT DATE: 2017
